FAERS Safety Report 8909153 (Version 1)
Quarter: 2012Q4

REPORT INFORMATION
  Report Type: 
  Country: US (occurrence: US)
  Receive Date: 20121113
  Receipt Date: 20121113
  Transmission Date: 20130627
  Serious: No
  Sender: FDA-Public Use
  Company Number: US-AMGEN-USASP2012011188

PATIENT
  Age: 49 Year
  Sex: Female

DRUGS (2)
  1. ENBREL [Suspect]
     Indication: RHEUMATOID ARTHRITIS
     Dosage: 50 mg, qwk
     Dates: start: 20111024, end: 20120206
  2. METHOTREXATE [Concomitant]
     Dosage: UNK

REACTIONS (3)
  - Sinus headache [Not Recovered/Not Resolved]
  - Nasal congestion [Not Recovered/Not Resolved]
  - Paranasal sinus hypersecretion [Not Recovered/Not Resolved]
